FAERS Safety Report 4857930-6 (Version None)
Quarter: 2005Q4

REPORT INFORMATION
  Report Type: 
  Country: None (occurrence: None)
  Receive Date: 20051219
  Receipt Date: 20050420
  Transmission Date: 20060501
  Serious: No
  Sender: FDA-Public Use
  Company Number: US-GLAXOSMITHKLINE-A0555000A

PATIENT
  Age: 42 Year
  Sex: Female

DRUGS (1)
  1. EQUATE NTS 14MG [Suspect]
     Dates: start: 20050414

REACTIONS (5)
  - ANGER [None]
  - APPLICATION SITE URTICARIA [None]
  - FEELING JITTERY [None]
  - NICOTINE DEPENDENCE [None]
  - RESTLESSNESS [None]
